FAERS Safety Report 15206909 (Version 1)
Quarter: 2018Q3

REPORT INFORMATION
  Report Type: Spontaneous
  Country: BG (occurrence: BG)
  Receive Date: 20180727
  Receipt Date: 20180727
  Transmission Date: 20181010
  Serious: Yes (Hospitalization)
  Sender: FDA-Public Use
  Company Number: BG-ACCORD-069969

PATIENT
  Age: 59 Year
  Sex: Male

DRUGS (10)
  1. NIMESULIDE/NIMESULIDE BETA?CYCLODEXTRINE [Concomitant]
     Indication: PHLEBITIS
     Route: 048
     Dates: start: 20171119, end: 20171128
  2. TRILACICLIB [Suspect]
     Active Substance: TRILACICLIB
     Indication: PRODUCT USED FOR UNKNOWN INDICATION
     Dosage: DAY1 CYCLE1
     Route: 042
     Dates: start: 20171024
  3. ATEZOLIZUMAB. [Suspect]
     Active Substance: ATEZOLIZUMAB
     Indication: SMALL CELL LUNG CANCER
     Dosage: INFUSION STARTED AT 14:15 AND ENDED AT 15:15
     Route: 042
     Dates: start: 20171024
  4. ONDANSETRON [Concomitant]
     Active Substance: ONDANSETRON
     Indication: PROPHYLAXIS
     Route: 042
     Dates: start: 20171114, end: 20171116
  5. HYDROXYZINE [Concomitant]
     Active Substance: HYDROXYZINE HYDROCHLORIDE
     Indication: INSOMNIA
     Route: 048
     Dates: start: 20171017
  6. FLUOCINOLONE ACETONIDE. [Concomitant]
     Active Substance: FLUOCINOLONE ACETONIDE
     Indication: PHLEBITIS
     Route: 061
     Dates: start: 20171119, end: 20171128
  7. CARBOPLATIN. [Suspect]
     Active Substance: CARBOPLATIN
     Indication: SMALL CELL LUNG CANCER
     Dosage: START TIME OF INFUSION: 11:105 END: 12:10
     Route: 042
     Dates: start: 20171024
  8. NADROPARIN [Concomitant]
     Active Substance: NADROPARIN
     Indication: DEEP VEIN THROMBOSIS
     Route: 058
     Dates: start: 20171205
  9. ETOPOSIDE. [Suspect]
     Active Substance: ETOPOSIDE
     Indication: SMALL CELL LUNG CANCER
     Dosage: DAY 3, CYCLE 3?START TIME:11:05 END:12:15
     Route: 042
     Dates: start: 20171024
  10. CHLOPHADON [Concomitant]
     Indication: HYPERTENSION
     Route: 048
     Dates: start: 201608

REACTIONS (1)
  - Deep vein thrombosis [Not Recovered/Not Resolved]

NARRATIVE: CASE EVENT DATE: 20171207
